FAERS Safety Report 5449578-X (Version None)
Quarter: 2007Q3

REPORT INFORMATION
  Report Type: 
  Country: None (occurrence: None)
  Receive Date: 20070910
  Receipt Date: 20070910
  Transmission Date: 20080115
  Serious: Yes (Hospitalization)
  Sender: FDA-Public Use
  Company Number: None

PATIENT
  Sex: Male
  Weight: 92 kg

DRUGS (1)
  1. MYLOTARG [Suspect]
     Dosage: 11 MG

REACTIONS (2)
  - CELLULITIS [None]
  - NEUTROPENIA [None]
